FAERS Safety Report 4974516-3 (Version None)
Quarter: 2006Q2

REPORT INFORMATION
  Report Type: 
  Country: None (occurrence: None)
  Receive Date: 20060410
  Receipt Date: 20060329
  Transmission Date: 20061013
  Serious: Yes (Hospitalization)
  Sender: FDA-Public Use
  Company Number: 2006011917

PATIENT
  Age: 62 Year
  Sex: Male
  Weight: 70 kg

DRUGS (6)
  1. ATORVASTATIN CALCIUM [Suspect]
     Indication: CORONARY ARTERY DISEASE
     Dosage: 80 MG (1 IN 1 D) ORAL
     Route: 048
     Dates: start: 20030101
  2. ATORVASTATIN CALCIUM [Suspect]
     Indication: HYPERLIPIDAEMIA
     Dosage: 80 MG (1 IN 1 D) ORAL
     Route: 048
     Dates: start: 20030101
  3. EZETROL (EZETIMIBE) [Concomitant]
  4. PIRETANIDE [Concomitant]
  5. ACETYLSALICYLIC ACID SRT [Concomitant]
  6. METOPROLOL TARTRATE [Concomitant]

REACTIONS (8)
  - ASTHENIA [None]
  - BLOOD CREATINE PHOSPHOKINASE INCREASED [None]
  - FALL [None]
  - HAEMARTHROSIS [None]
  - OEDEMA PERIPHERAL [None]
  - PAIN [None]
  - PAIN IN EXTREMITY [None]
  - TENDON RUPTURE [None]
